FAERS Safety Report 5104957-5 (Version None)
Quarter: 2006Q3

REPORT INFORMATION
  Report Type: 
  Country: None (occurrence: None)
  Receive Date: 20060914
  Receipt Date: 20060905
  Transmission Date: 20061208
  Serious: Yes (Hospitalization, Other)
  Sender: FDA-Public Use
  Company Number: AU-BRISTOL-MYERS SQUIBB COMPANY-13497698

PATIENT
  Sex: Male

DRUGS (2)
  1. AVAPRO [Suspect]
     Indication: HYPERTENSION
     Route: 048
     Dates: start: 20051201, end: 20060904
  2. ATENOLOL [Interacting]
     Indication: HYPERTENSION
     Dosage: DURATION: MANY YEARS
     Route: 048

REACTIONS (3)
  - ABDOMINAL DISTENSION [None]
  - ATRIAL FIBRILLATION [None]
  - DRUG INTERACTION [None]
